FAERS Safety Report 9044957 (Version 1)
Quarter: 2013Q1

REPORT INFORMATION
  Report Type: Report from Study
  Country: US (occurrence: US)
  Receive Date: 20130130
  Receipt Date: 20130130
  Transmission Date: 20140127
  Serious: Yes (Hospitalization, Other)
  Sender: FDA-Public Use
  Company Number: US-ABBOTT-12P-163-0955063-00

PATIENT
  Age: 55 None
  Sex: Male
  Weight: 132.57 kg

DRUGS (1)
  1. HUMIRA 40 MG/ 0.8 ML PRE-FILLED SYRINGE [Suspect]
     Indication: CROHN^S DISEASE
     Dosage: 0.8ML^S
     Route: 058
     Dates: start: 201205

REACTIONS (4)
  - Gallbladder operation [Unknown]
  - Procedural pain [Unknown]
  - Dyspnoea [Unknown]
  - Pyrexia [Unknown]
